FAERS Safety Report 10648955 (Version 2)
Quarter: 2014Q4

REPORT INFORMATION
  Report Type: Spontaneous
  Country: GB (occurrence: GB)
  Receive Date: 20141212
  Receipt Date: 20141230
  Transmission Date: 20150529
  Serious: Yes (Death, Hospitalization)
  Sender: FDA-Public Use
  Company Number: GB-ACTELION-A-CH2014-109289

PATIENT
  Age: 61 Year
  Sex: Female
  Weight: 59 kg

DRUGS (7)
  1. FERROUS SULFATE [Concomitant]
     Active Substance: FERROUS SULFATE\FERROUS SULFATE, DRIED
     Dosage: 200 MG, UNK
  2. BENDROFLUAZIDE [Concomitant]
     Active Substance: BENDROFLUMETHIAZIDE
     Dosage: 5 MG, UNK
  3. SPIRONOLACTONE. [Concomitant]
     Active Substance: SPIRONOLACTONE
     Dosage: 50 MG, QD
  4. VELETRI [Suspect]
     Active Substance: EPOPROSTENOL
     Indication: PULMONARY ARTERIAL HYPERTENSION
     Dosage: 17 MG/KG, PER MIN
     Route: 042
     Dates: start: 20140723, end: 20141130
  5. BUMETANIDE. [Concomitant]
     Active Substance: BUMETANIDE
     Dosage: 3 MG, QD
  6. SILDENAFIL. [Concomitant]
     Active Substance: SILDENAFIL
     Dosage: 25 MG, UNK
     Dates: start: 20140321
  7. LANSOPRAZOLE. [Concomitant]
     Active Substance: LANSOPRAZOLE
     Dosage: 30 MG, QD

REACTIONS (8)
  - Dyspnoea [Unknown]
  - Swelling [Unknown]
  - Condition aggravated [Fatal]
  - Cardiac failure [Unknown]
  - Pulmonary arterial hypertension [Fatal]
  - Palliative care [Fatal]
  - Ascites [Unknown]
  - Disease progression [Unknown]
